FAERS Safety Report 10136443 (Version 2)
Quarter: 2014Q2

REPORT INFORMATION
  Report Type: Spontaneous
  Country: GB (occurrence: None)
  Receive Date: 20140425
  Receipt Date: 20140515
  Transmission Date: 20141212
  Serious: Yes (Life-Threatening, Hospitalization, Other)
  Sender: FDA-Public Use
  Company Number: AUR-APL-2014-04752

PATIENT
  Age: 92 Year
  Sex: Female

DRUGS (5)
  1. AMOXICILLIN [Suspect]
     Indication: LOWER RESPIRATORY TRACT INFECTION
     Dosage: 750 MG
     Route: 048
     Dates: start: 20130902
  2. CALCICHEW D3 (LEKOVIT CA) [Concomitant]
  3. FLECAINIDE (FLECAINIDE) [Concomitant]
  4. NITROFURANTOIN (NITROFURANTOIN) [Concomitant]
  5. PARACETAMOL (PARACETAMOL) [Concomitant]

REACTIONS (6)
  - Pneumonia [None]
  - Systemic inflammatory response syndrome [None]
  - Cough [None]
  - Crepitations [None]
  - Treatment failure [None]
  - Medication error [None]
